FAERS Safety Report 13555305 (Version 1)
Quarter: 2017Q2

REPORT INFORMATION
  Report Type: Spontaneous
  Country: BR (occurrence: BR)
  Receive Date: 20170517
  Receipt Date: 20170517
  Transmission Date: 20170830
  Serious: Yes (Hospitalization)
  Sender: FDA-Public Use
  Company Number: BR-BAYER-2017-075078

PATIENT
  Age: 75 Year
  Sex: Male
  Weight: 72 kg

DRUGS (1)
  1. ULTRAVIST [Suspect]
     Active Substance: IOPROMIDE
     Indication: COMPUTERISED TOMOGRAM ABDOMEN
     Dosage: PROGRAMMED IN THE INJECTOR 130 ML WITH FLOW OF 4ML / S (CONTRAST INJECTED IN UPPER RIGHT LIMB)
     Route: 042
     Dates: start: 20170329, end: 20170329

REACTIONS (4)
  - Infusion site mobility decreased [Recovering/Resolving]
  - Infusion site extravasation [None]
  - Infusion site oedema [Recovering/Resolving]
  - Infusion site pain [Recovering/Resolving]

NARRATIVE: CASE EVENT DATE: 20170329
